FAERS Safety Report 9274647 (Version 1)
Quarter: 2013Q2

REPORT INFORMATION
  Report Type: Spontaneous
  Country: US (occurrence: None)
  Receive Date: 20130430
  Receipt Date: 20130430
  Transmission Date: 20140414
  Serious: Yes (Hospitalization)
  Sender: FDA-Public Use
  Company Number: None

PATIENT
  Age: 65 Year
  Sex: Female
  Weight: 49.5 kg

DRUGS (1)
  1. ERBITUX (CETUXIMAB) [Suspect]

REACTIONS (3)
  - Hypophagia [None]
  - Pneumonia [None]
  - Electrolyte imbalance [None]
